FAERS Safety Report 9097340 (Version 2)
Quarter: 2013Q1

REPORT INFORMATION
  Report Type: Spontaneous
  Country: JP (occurrence: JP)
  Receive Date: 20130212
  Receipt Date: 20130319
  Transmission Date: 20140127
  Serious: Yes (Hospitalization)
  Sender: FDA-Public Use
  Company Number: JP-PFIZER INC-2013053561

PATIENT
  Age: 87 Year
  Sex: Female

DRUGS (2)
  1. JZOLOFT [Suspect]
     Dosage: 25 MG, 1X/DAY
     Route: 048
  2. WYPAX [Suspect]
     Dosage: 0.5 MG, 2X/DAY
     Route: 048

REACTIONS (1)
  - Fracture [Recovering/Resolving]
